FAERS Safety Report 24059186 (Version 1)
Quarter: 2024Q3

REPORT INFORMATION
  Report Type: Spontaneous
  Country: IN (occurrence: IN)
  Receive Date: 20240708
  Receipt Date: 20240708
  Transmission Date: 20241016
  Serious: Yes (Hospitalization, Other)
  Sender: CIPLA
  Company Number: IN-CIPLA LTD.-2024IN06905

PATIENT

DRUGS (4)
  1. EFAVIRENZ [Suspect]
     Active Substance: EFAVIRENZ
     Indication: HIV infection
     Dosage: UNK (FOR THE 5 YEARS)
     Route: 065
  2. EFAVIRENZ [Suspect]
     Active Substance: EFAVIRENZ
     Dosage: UNK (REVISED ART), TABLET
     Route: 065
  3. LAMIVUDINE [Concomitant]
     Active Substance: LAMIVUDINE
     Indication: HIV infection
     Dosage: UNK (PAST 5 YEARS)
     Route: 065
  4. ABACAVIR [Concomitant]
     Active Substance: ABACAVIR
     Indication: HIV infection
     Dosage: UNK (FOR THE 5 YEARS)
     Route: 065

REACTIONS (1)
  - Lupus-like syndrome [Recovering/Resolving]
